FAERS Safety Report 6014230-9 (Version None)
Quarter: 2008Q4

REPORT INFORMATION
  Report Type: 
  Country: None (occurrence: None)
  Receive Date: 20081219
  Receipt Date: 20080226
  Transmission Date: 20090506
  Serious: No
  Sender: FDA-Public Use
  Company Number: A0711957A

PATIENT
  Age: 71 Year
  Sex: Male

DRUGS (22)
  1. AVODART [Suspect]
     Indication: BENIGN PROSTATIC HYPERPLASIA
     Dosage: .5MG PER DAY
     Route: 048
     Dates: start: 20070101
  2. LEVOTHYROXINE SODIUM [Concomitant]
  3. ALPRAZOLAM [Concomitant]
  4. CITALOPRAM [Concomitant]
  5. FLOMAX [Concomitant]
  6. ETODOLAC [Concomitant]
  7. CEROVITE [Concomitant]
  8. ASPIRIN [Concomitant]
  9. ZINC [Concomitant]
  10. B6 VITAMIN [Concomitant]
  11. FOLIC ACID [Concomitant]
  12. NEXIUM [Concomitant]
  13. FISH OIL [Concomitant]
  14. CHONDROITIN [Concomitant]
  15. MAGNESIUM SULFATE [Concomitant]
  16. COENZYME Q10 [Concomitant]
  17. SAW PALMETTO [Concomitant]
  18. CITRACAL [Concomitant]
  19. JUICE PLUS [Concomitant]
  20. GLUCOSAMINE [Concomitant]
  21. VITAMIN B-12 [Concomitant]
  22. UNKNOWN MEDICATION [Concomitant]

REACTIONS (2)
  - CHEST PAIN [None]
  - PROSTATIC SPECIFIC ANTIGEN INCREASED [None]
